FAERS Safety Report 25974310 (Version 1)
Quarter: 2025Q4

REPORT INFORMATION
  Report Type: Spontaneous
  Country: US (occurrence: None)
  Receive Date: 20251028
  Receipt Date: 20251028
  Transmission Date: 20260117
  Serious: Yes (Death)
  Sender: FDA-CTU
  Company Number: None

PATIENT
  Age: 86 Year
  Sex: Female

DRUGS (11)
  1. REVLIMID [Suspect]
     Active Substance: LENALIDOMIDE
     Indication: Plasma cell myeloma
     Dosage: OTHER QUANTITY : 20MG CAPSULES;?OTHER FREQUENCY : OTHER;?
     Route: 048
     Dates: start: 20240802
  2. ASPIRIN EC LOW [Concomitant]
  3. CALCIUM GARB [Concomitant]
  4. MULTIVITAMIN ADULT 50+ [Concomitant]
  5. TYLENOL [Concomitant]
     Active Substance: ACETAMINOPHEN
  6. VELCADE [Concomitant]
     Active Substance: BORTEZOMIB
  7. XGEVA [Concomitant]
     Active Substance: DENOSUMAB
  8. CLARITIN [Concomitant]
     Active Substance: LORATADINE
  9. COMPAZINE [Concomitant]
     Active Substance: PROCHLORPERAZINE MALEATE
  10. IMODIUM [Concomitant]
     Active Substance: LOPERAMIDE HYDROCHLORIDE
  11. MAGNESIUM [Concomitant]
     Active Substance: MAGNESIUM

REACTIONS (1)
  - Death [None]
